FAERS Safety Report 18489792 (Version 1)
Quarter: 2020Q4

REPORT INFORMATION
  Report Type: Spontaneous
  Country: US (occurrence: US)
  Receive Date: 20201111
  Receipt Date: 20201111
  Transmission Date: 20210114
  Serious: No
  Sender: FDA-Public Use
  Company Number: US-GW PHARMA-202011USGW03854

PATIENT

DRUGS (5)
  1. EPIDIOLEX [Suspect]
     Active Substance: CANNABIDIOL
     Dosage: 300 MILLIGRAM, BID
     Route: 048
     Dates: start: 20201106
  2. EPIDIOLEX [Suspect]
     Active Substance: CANNABIDIOL
     Indication: TUBEROUS SCLEROSIS COMPLEX
     Dosage: UNKNOWN DOSE
     Route: 048
     Dates: start: 201905
  3. EPIDIOLEX [Suspect]
     Active Substance: CANNABIDIOL
     Dosage: 300 MILLIGRAM, BID
     Route: 048
     Dates: start: 20200218, end: 20201019
  4. EPIDIOLEX [Suspect]
     Active Substance: CANNABIDIOL
     Dosage: 200 MILLIGRAM, BID
     Route: 048
     Dates: start: 20201020, end: 20201105
  5. EPIDIOLEX [Suspect]
     Active Substance: CANNABIDIOL
     Dosage: 400 MILLIGRAM, BID
     Route: 048
     Dates: end: 2020

REACTIONS (3)
  - Initial insomnia [Unknown]
  - Somnolence [Unknown]
  - Seizure [Unknown]

NARRATIVE: CASE EVENT DATE: 201905
